FAERS Safety Report 8195399-7 (Version None)
Quarter: 2012Q1

REPORT INFORMATION
  Report Type: 
  Country: None (occurrence: None)
  Receive Date: 20120308
  Receipt Date: 20120302
  Transmission Date: 20120608
  Serious: Yes (Other)
  Sender: FDA-Public Use
  Company Number: PHHY2012US019038

PATIENT

DRUGS (1)
  1. ZOLEDRONIC ACID [Suspect]

REACTIONS (6)
  - OSTEONECROSIS OF JAW [None]
  - ABSCESS [None]
  - OROANTRAL FISTULA [None]
  - INFLAMMATION [None]
  - PAIN IN JAW [None]
  - SWELLING [None]
